FAERS Safety Report 10281499 (Version 2)
Quarter: 2014Q3

REPORT INFORMATION
  Report Type: Spontaneous
  Country: US (occurrence: US)
  Receive Date: 20140707
  Receipt Date: 20140917
  Transmission Date: 20150326
  Serious: No
  Sender: FDA-Public Use
  Company Number: US-AMGEN-USASP2014042736

PATIENT
  Age: 68 Year
  Sex: Male

DRUGS (2)
  1. ENBREL [Suspect]
     Active Substance: ETANERCEPT
     Indication: RHEUMATOID ARTHRITIS
     Dosage: 50 MG, QWK
     Route: 065
     Dates: start: 20140307
  2. HYDROXYCHLOROQUINE                 /00072603/ [Concomitant]
     Dosage: 200 MG, IN THE EVENING
     Route: 065

REACTIONS (5)
  - Pruritus [Recovered/Resolved]
  - Headache [Recovered/Resolved]
  - Throat irritation [Not Recovered/Not Resolved]
  - Dysphonia [Not Recovered/Not Resolved]
  - Nasopharyngitis [Not Recovered/Not Resolved]

NARRATIVE: CASE EVENT DATE: 2014
